FAERS Safety Report 25264621 (Version 2)
Quarter: 2025Q2

REPORT INFORMATION
  Report Type: Spontaneous
  Country: BR (occurrence: BR)
  Receive Date: 20250502
  Receipt Date: 20250519
  Transmission Date: 20250717
  Serious: Yes (Hospitalization, Other)
  Sender: BOEHRINGER INGELHEIM
  Company Number: BR-BoehringerIngelheim-2025-BI-024825

PATIENT
  Sex: Male
  Weight: 66 kg

DRUGS (2)
  1. OFEV [Suspect]
     Active Substance: NINTEDANIB
     Indication: Chronic obstructive pulmonary disease
     Dosage: IN THE MORNING AND AT NIGHT
  2. AZITHROMYCIN DIHYDRATE [Suspect]
     Active Substance: AZITHROMYCIN DIHYDRATE
     Indication: Chronic obstructive pulmonary disease

REACTIONS (11)
  - Pneumonia [Recovered/Resolved with Sequelae]
  - Condition aggravated [Recovered/Resolved]
  - Immunodeficiency [Unknown]
  - Cardiac disorder [Unknown]
  - Drug resistance [Recovered/Resolved]
  - Bedridden [Recovered/Resolved]
  - Intentional product use issue [Recovered/Resolved]
  - Cardiovascular disorder [Recovered/Resolved]
  - Viral infection [Unknown]
  - Lung disorder [Unknown]
  - Constipation [Unknown]
